FAERS Safety Report 9782584 (Version 2)
Quarter: 2014Q1

REPORT INFORMATION
  Report Type: Report from Study
  Country: BR (occurrence: BR)
  Receive Date: 20131226
  Receipt Date: 20140123
  Transmission Date: 20141002
  Serious: Yes (Other)
  Sender: FDA-Public Use
  Company Number: PHHY2013BR151599

PATIENT
  Sex: Female
  Weight: 79 kg

DRUGS (3)
  1. ACLASTA [Suspect]
     Indication: OSTEOPOROSIS
     Dosage: 5 MG, UNK
     Route: 042
     Dates: start: 2013
  2. CHLOROTHIAZIDE [Concomitant]
     Dosage: UNK UKN, UNK
  3. CAPTOPRIL [Concomitant]
     Dosage: UNK UKN, UNK

REACTIONS (5)
  - Upper limb fracture [Unknown]
  - Feeling hot [Unknown]
  - Patient-device incompatibility [Unknown]
  - Pain [Unknown]
  - Drug ineffective [Unknown]
